FAERS Safety Report 9235794 (Version 4)
Quarter: 2013Q4

REPORT INFORMATION
  Report Type: Report from Study
  Country: US (occurrence: US)
  Receive Date: 20130417
  Receipt Date: 20131216
  Transmission Date: 20140711
  Serious: Yes (Hospitalization)
  Sender: FDA-Public Use
  Company Number: PHHO2013US002133

PATIENT
  Age: 37 Year
  Sex: Male
  Weight: 66.3 kg

DRUGS (4)
  1. TOBRAMYCIN INHALATION POWDER [Suspect]
     Indication: CYSTIC FIBROSIS
     Dosage: 112 MG, BID
     Route: 055
     Dates: start: 20121115
  2. TOBRAMYCIN INHALATION POWDER [Suspect]
     Dosage: 112 MG, BID
     Route: 055
  3. BACTRIM DS [Concomitant]
     Indication: CYSTIC FIBROSIS
     Dosage: 1 DF, BID
     Route: 048
     Dates: start: 200712
  4. DOXYCYCLINE [Concomitant]
     Indication: CYSTIC FIBROSIS
     Dosage: 100 MG, BID
     Route: 048
     Dates: start: 200712

REACTIONS (1)
  - Infective pulmonary exacerbation of cystic fibrosis [Recovered/Resolved]
